FAERS Safety Report 24838450 (Version 1)
Quarter: 2025Q1

REPORT INFORMATION
  Report Type: Spontaneous
  Country: US (occurrence: US)
  Receive Date: 20250113
  Receipt Date: 20250113
  Transmission Date: 20250409
  Serious: No
  Sender: PFIZER
  Company Number: US-PFIZER INC-202500004656

PATIENT
  Age: 55 Year
  Sex: Female

DRUGS (36)
  1. PAXLOVID [Suspect]
     Active Substance: NIRMATRELVIR\RITONAVIR
     Indication: Post-acute COVID-19 syndrome
     Route: 048
     Dates: start: 202212
  2. CROMOLYN SODIUM [Concomitant]
     Active Substance: CROMOLYN SODIUM
  3. KETOTIFEN [Concomitant]
     Active Substance: KETOTIFEN
  4. NALTREXONE [Concomitant]
     Active Substance: NALTREXONE
  5. METOPROLOL SUCCINATE [Concomitant]
     Active Substance: METOPROLOL SUCCINATE
  6. ROSUVASTATIN [Concomitant]
     Active Substance: ROSUVASTATIN
  7. NORTRIPTYLINE [Concomitant]
     Active Substance: NORTRIPTYLINE
  8. MODAFINIL [Concomitant]
     Active Substance: MODAFINIL
  9. FINASTERIDE [Concomitant]
     Active Substance: FINASTERIDE
  10. LORATADINE [Concomitant]
     Active Substance: LORATADINE
  11. VALACYCLOVIR [Concomitant]
     Active Substance: VALACYCLOVIR HYDROCHLORIDE
  12. FAMOTIDINE [Concomitant]
     Active Substance: FAMOTIDINE
  13. NITROFURANTOIN [Concomitant]
     Active Substance: NITROFURANTOIN
     Dosage: UNK, DAILY
  14. TESTOSTERONE CYPIONATE [Concomitant]
     Active Substance: TESTOSTERONE CYPIONATE
     Dosage: UNK, WEEKLY
  15. LEUPROLIDE ACETATE [Concomitant]
     Active Substance: LEUPROLIDE ACETATE
  16. ZOFRAN [Concomitant]
     Active Substance: ONDANSETRON HYDROCHLORIDE
  17. CLONAZEPAM [Concomitant]
     Active Substance: CLONAZEPAM
  18. DEPLIN [CALCIUM LEVOMEFOLATE] [Concomitant]
     Indication: Supplementation therapy
     Dosage: UNK, DAILY
  19. CRANBERRY [Concomitant]
     Active Substance: CRANBERRY
     Indication: Supplementation therapy
     Dosage: UNK, DAILY
  20. LAXIN FORTE [Concomitant]
     Indication: Supplementation therapy
     Dosage: UNK, DAILY
  21. BIOTIN [Concomitant]
     Active Substance: BIOTIN
     Indication: Supplementation therapy
     Dosage: UNK, DAILY
  22. UBIQUINOL [Concomitant]
     Active Substance: UBIQUINOL
     Indication: Supplementation therapy
     Dosage: UNK, DAILY
  23. ALPHA LIPOIC ACID [Concomitant]
     Active Substance: .ALPHA.-LIPOIC ACID
     Indication: Supplementation therapy
     Dosage: UNK, DAILY
  24. PROBIOTICS NOS [Concomitant]
     Active Substance: PROBIOTICS NOS
     Indication: Supplementation therapy
     Dosage: UNK, DAILY
  25. FISH OIL [Concomitant]
     Active Substance: FISH OIL
     Indication: Supplementation therapy
     Dosage: UNK, DAILY
  26. FLAXSEED [Concomitant]
     Active Substance: FLAX SEED
     Indication: Supplementation therapy
     Dosage: UNK, DAILY
  27. QUERCETIN [Concomitant]
     Active Substance: QUERCETIN
     Indication: Supplementation therapy
     Dosage: UNK, DAILY
  28. VITAMIN C [Concomitant]
     Active Substance: ASCORBIC ACID
     Indication: Supplementation therapy
     Dosage: UNK, DAILY
  29. VITAMIN C [Concomitant]
     Active Substance: ASCORBIC ACID
  30. ACETYLCARNITINE [Concomitant]
     Active Substance: ACETYLCARNITINE
     Indication: Supplementation therapy
     Dosage: UNK, DAILY
  31. DIETARY SUPPLEMENT\HERBALS\MILK THISTLE [Concomitant]
     Active Substance: MILK THISTLE
     Indication: Supplementation therapy
     Dosage: UNK, DAILY
  32. CALCIUM [Concomitant]
     Active Substance: CALCIUM
     Indication: Supplementation therapy
     Dosage: UNK, DAILY
  33. SKULLCAP [SCUTELLARIA LATERIFLORA] [Concomitant]
     Indication: Supplementation therapy
     Dosage: UNK, DAILY
  34. GLUTATIONE [Concomitant]
     Dosage: UNK, TWICE WEEKLY
  35. METHYLCOBALAMIN [Concomitant]
     Active Substance: METHYLCOBALAMIN
     Dosage: UNK, TWICE WEEKLY
  36. MELATONIN [Concomitant]
     Active Substance: MELATONIN

REACTIONS (4)
  - Off label use [Unknown]
  - Drug effective for unapproved indication [Unknown]
  - Off label use [Unknown]
  - Product use issue [Unknown]

NARRATIVE: CASE EVENT DATE: 20221201
